FAERS Safety Report 9544058 (Version 1)
Quarter: 2013Q2

REPORT INFORMATION
  Report Type: Spontaneous
  Country: US (occurrence: None)
  Receive Date: 20130524
  Receipt Date: 20130524
  Transmission Date: 20140414
  Serious: No
  Sender: FDA-Public Use
  Company Number: PHEH2013US004128

PATIENT
  Age: 26 Year
  Sex: Female

DRUGS (1)
  1. GILENYA [Suspect]
     Indication: MULTIPLE SCLEROSIS
     Route: 048
     Dates: start: 20130214

REACTIONS (5)
  - Fatigue [None]
  - Dizziness [None]
  - Headache [None]
  - Nausea [None]
  - Paraesthesia [None]
